FAERS Safety Report 22530062 (Version 2)
Quarter: 2023Q2

REPORT INFORMATION
  Report Type: Spontaneous
  Country: JP (occurrence: JP)
  Receive Date: 20230607
  Receipt Date: 20230622
  Transmission Date: 20230721
  Serious: Yes (Life-Threatening, Other)
  Sender: FDA-Public Use
  Company Number: JP-MH-2023M1057620AA

PATIENT
  Age: 6 Decade
  Sex: Female

DRUGS (1)
  1. CARBOPLATIN [Suspect]
     Active Substance: CARBOPLATIN
     Indication: Ovarian cancer
     Dosage: 5 AUC ONE DAY
     Route: 042
     Dates: start: 202304, end: 202306

REACTIONS (2)
  - Anaphylactic reaction [Recovered/Resolved]
  - Shock [Recovered/Resolved]

NARRATIVE: CASE EVENT DATE: 20230401
